APPROVED DRUG PRODUCT: BISOPROLOL FUMARATE
Active Ingredient: BISOPROLOL FUMARATE
Strength: 10MG
Dosage Form/Route: TABLET;ORAL
Application: A217368 | Product #002 | TE Code: AB
Applicant: PRINSTON PHARMACEUTICAL INC
Approved: Jul 14, 2023 | RLD: No | RS: No | Type: RX